FAERS Safety Report 4739166-2 (Version None)
Quarter: 2005Q3

REPORT INFORMATION
  Report Type: 
  Country: None (occurrence: None)
  Receive Date: 20050810
  Receipt Date: 20050427
  Transmission Date: 20060218
  Serious: No
  Sender: FDA-Public Use
  Company Number: US-GLAXOSMITHKLINE-A0556892A

PATIENT
  Sex: Female

DRUGS (1)
  1. PAXIL CR [Suspect]
     Indication: DEPRESSION
     Dosage: 25MG UNKNOWN
     Route: 048

REACTIONS (5)
  - DYSPHEMIA [None]
  - EYELID FUNCTION DISORDER [None]
  - INSOMNIA [None]
  - NERVOUSNESS [None]
  - SLUGGISHNESS [None]
